FAERS Safety Report 9005052 (Version 1)
Quarter: 2013Q1

REPORT INFORMATION
  Report Type: Spontaneous
  Country: US (occurrence: US)
  Receive Date: 20130109
  Receipt Date: 20130109
  Transmission Date: 20140127
  Serious: No
  Sender: FDA-Public Use
  Company Number: US-009507513-1301USA003160

PATIENT
  Sex: 0

DRUGS (2)
  1. VICTRELIS [Suspect]
  2. PEGINTRON [Suspect]

REACTIONS (1)
  - Inappropriate schedule of drug administration [Unknown]
